FAERS Safety Report 8317914-2 (Version None)
Quarter: 2012Q2

REPORT INFORMATION
  Report Type: 
  Country: None (occurrence: None)
  Receive Date: 20120427
  Receipt Date: 20120413
  Transmission Date: 20120825
  Serious: Yes (Hospitalization, Other)
  Sender: FDA-Public Use
  Company Number: US-MYLANLABS-2009AC000081

PATIENT
  Sex: Female
  Weight: 105.6 kg

DRUGS (47)
  1. DIGOXIN [Suspect]
     Route: 048
     Dates: start: 20010117, end: 20090803
  2. MECLIZINE [Concomitant]
  3. LORTAB [Concomitant]
  4. POTASSIUM CHLORIDE [Concomitant]
     Route: 048
  5. LISINOPRIL AND HYDROCHLOROTHIAZIDE [Concomitant]
     Dosage: 20/12.5MG
  6. MAGNESIUM OXIDE [Concomitant]
  7. DILTIAZEM [Concomitant]
  8. SPIRIVA [Concomitant]
     Dosage: 1 PUFF DAILY
  9. OXYCODONE HCL [Concomitant]
  10. LISINOPRIL [Concomitant]
  11. CENTRUM [Concomitant]
     Dosage: CARDIO
  12. CARDIZEM [Concomitant]
  13. IPRATROPIUM BROMIDE [Concomitant]
  14. VISTARIL [Concomitant]
  15. ENDURON [Concomitant]
     Route: 048
  16. DUONEB [Concomitant]
  17. VANCOMYCIN [Concomitant]
     Route: 042
  18. RYTHMOL [Concomitant]
  19. AMIODARONE HCL [Concomitant]
  20. XALATAN [Concomitant]
     Dosage: 0.005% BOTH EYES DAILY
  21. BENICAR [Concomitant]
  22. CARVEDILOL [Concomitant]
  23. ALBUTEROL [Concomitant]
  24. PHENAZOPYRIDINE HCL TAB [Concomitant]
  25. INSULIN [Concomitant]
  26. TYLOX [Concomitant]
  27. TRILEPTAL [Concomitant]
  28. NITROGLYCERIN [Concomitant]
     Route: 062
  29. LEVOFLOXACIN [Concomitant]
     Route: 042
  30. DIFLUCAN [Concomitant]
  31. ASPIRIN [Concomitant]
  32. TOLECTIN [Concomitant]
  33. MUCINEX [Concomitant]
  34. PROMETHAZINE - CODEINE /01129901/ [Concomitant]
  35. COREG [Concomitant]
  36. GLYBURIDE [Concomitant]
  37. VASERETIC [Concomitant]
     Dosage: 20/12.5MG
  38. LASIX [Concomitant]
  39. POTASSIUM CHLORIDE [Concomitant]
  40. MULTI-VITAMIN [Concomitant]
  41. TALWIN /00052101/ [Concomitant]
     Indication: PAIN
  42. RELAFEN [Concomitant]
  43. LOVENOX [Concomitant]
     Route: 058
  44. LANTUS [Concomitant]
  45. PHENOBARBITAL TAB [Concomitant]
     Dosage: 120MG ONE DAY AND 180MG THE NEXT DAY
  46. WELCHOL [Concomitant]
     Dosage: 6 TABLETS DAILY
     Route: 048
  47. SYMBICORT [Concomitant]
     Dosage: 2 PUFFS BID

REACTIONS (58)
  - ILL-DEFINED DISORDER [None]
  - PLEURAL EFFUSION [None]
  - STARING [None]
  - MIGRAINE [None]
  - ARTERIOSCLEROSIS [None]
  - COMPUTERISED TOMOGRAM ABNORMAL [None]
  - OEDEMA PERIPHERAL [None]
  - FLUID OVERLOAD [None]
  - EMPTY SELLA SYNDROME [None]
  - PNEUMONIA [None]
  - RHABDOMYOLYSIS [None]
  - CONDITION AGGRAVATED [None]
  - ELECTROCARDIOGRAM ABNORMAL [None]
  - RHONCHI [None]
  - TREATMENT NONCOMPLIANCE [None]
  - MYOCARDIAL INFARCTION [None]
  - CATHETERISATION CARDIAC ABNORMAL [None]
  - TYPE 2 DIABETES MELLITUS [None]
  - COUGH [None]
  - TYPE V HYPERLIPIDAEMIA [None]
  - DECREASED APPETITE [None]
  - VERTIGO [None]
  - CHRONIC OBSTRUCTIVE PULMONARY DISEASE [None]
  - CHEST PAIN [None]
  - HYPERGLYCAEMIA [None]
  - ANXIETY [None]
  - FACIAL PAIN [None]
  - HYPERCHOLESTEROLAEMIA [None]
  - WHEEZING [None]
  - UNRESPONSIVE TO STIMULI [None]
  - CORONARY ARTERY DISEASE [None]
  - DYSPNOEA [None]
  - HYPOTENSION [None]
  - TRIGEMINAL NEURALGIA [None]
  - CORONARY ARTERY BYPASS [None]
  - CONVULSION [None]
  - ESSENTIAL HYPERTENSION [None]
  - INSULIN-REQUIRING TYPE 2 DIABETES MELLITUS [None]
  - ORTHOPNOEA [None]
  - ANAEMIA POSTOPERATIVE [None]
  - NAUSEA [None]
  - OBESITY [None]
  - PYREXIA [None]
  - TROPONIN INCREASED [None]
  - ECONOMIC PROBLEM [None]
  - ANAEMIA [None]
  - ATRIAL FIBRILLATION [None]
  - URINARY TRACT INFECTION [None]
  - DEPRESSION [None]
  - HYPOKALAEMIA [None]
  - INJURY [None]
  - CARDIAC DISORDER [None]
  - HYPERTENSION [None]
  - GENITAL CANDIDIASIS [None]
  - ANGINA UNSTABLE [None]
  - BREATH SOUNDS ABNORMAL [None]
  - LABORATORY TEST ABNORMAL [None]
  - VULVOVAGINAL CANDIDIASIS [None]
